FAERS Safety Report 24553002 (Version 1)
Quarter: 2024Q4

REPORT INFORMATION
  Report Type: Report from Study
  Country: ZA (occurrence: ZA)
  Receive Date: 20241027
  Receipt Date: 20241027
  Transmission Date: 20250115
  Serious: Yes (Hospitalization)
  Sender: ABBVIE
  Company Number: ZA-ABBOTT-2024A-1390018

PATIENT
  Sex: Male

DRUGS (8)
  1. CREON [Suspect]
     Active Substance: PANCRELIPASE AMYLASE\PANCRELIPASE LIPASE\PANCRELIPASE PROTEASE
     Indication: Cystic fibrosis
     Dosage: 150 MG TAKE THREE TABLETS ONCE A DAY? 10000
     Route: 048
  2. RYZODEG 70/30 [Concomitant]
     Active Substance: INSULIN ASPART\INSULIN DEGLUDEC
     Indication: Diabetes mellitus
     Dosage: 100 U USE 30U IN THE MORNING WITH FOOD
     Route: 058
  3. ABACAVIR SULFATE\LAMIVUDINE [Concomitant]
     Active Substance: ABACAVIR SULFATE\LAMIVUDINE
     Indication: HIV infection
     Dosage: 600/300 MG TAKE ONE TABLET ONCE A DAY
     Route: 048
  4. ALLERGEX [Concomitant]
     Indication: Hypersensitivity
     Dosage: 4 MG TAKE ONE TABLET THREE TIMES A DAY WHEN NECESSARY
     Route: 048
  5. ZATONAV [Concomitant]
     Indication: HIV infection
     Dosage: TAKE ONE TABLET ONCE A DAY
     Route: 048
  6. GLOVIREG [Concomitant]
     Indication: Epilepsy
     Dosage: 75 MG TAKE ONE CAPSULE TWICE A DAY AFTER FOOD
     Route: 048
  7. PURBAC ADULT [Concomitant]
     Indication: Acne
     Dosage: 480 MG TAKE ONE TABLET ONCE A DAY AFTER FOOD
     Route: 048
  8. PRAZTEK [Concomitant]
     Indication: Ulcer
     Dosage: 20 MG TAKE ONE TABLET IN THE MORNING BEFORE FOOD
     Route: 048

REACTIONS (2)
  - Bacterial infection [Unknown]
  - Gastrointestinal disorder [Unknown]
